FAERS Safety Report 4878679-X (Version None)
Quarter: 2006Q1

REPORT INFORMATION
  Report Type: 
  Country: None (occurrence: None)
  Receive Date: 20060112
  Receipt Date: 20051026
  Transmission Date: 20060701
  Serious: Yes (Death, Hospitalization)
  Sender: FDA-Public Use
  Company Number: PHEH2005US11877

PATIENT
  Age: 43 Year
  Sex: Male

DRUGS (3)
  1. NEURONTIN [Concomitant]
     Indication: NEUROPATHY PERIPHERAL
     Route: 048
     Dates: start: 20051010, end: 20051016
  2. TEGRETOL [Suspect]
     Indication: NEUROPATHY PERIPHERAL
     Dosage: UNK, BID
     Route: 048
     Dates: start: 20051010, end: 20051016
  3. STEROIDS NOS [Suspect]

REACTIONS (9)
  - ANAEMIA [None]
  - DEATH [None]
  - HAEMOGLOBIN DECREASED [None]
  - HYPERSENSITIVITY [None]
  - HYPOTENSION [None]
  - LEUKOPENIA [None]
  - NEUTROPENIA [None]
  - PYREXIA [None]
  - SKIN EXFOLIATION [None]
